FAERS Safety Report 8275985-6 (Version None)
Quarter: 2012Q2

REPORT INFORMATION
  Report Type: 
  Country: None (occurrence: None)
  Receive Date: 20120412
  Receipt Date: 20120410
  Transmission Date: 20120825
  Serious: No
  Sender: FDA-Public Use
  Company Number: US-PFIZER INC-2012089700

PATIENT
  Sex: Female

DRUGS (1)
  1. CHANTIX [Suspect]
     Dosage: UNK

REACTIONS (5)
  - FEAR [None]
  - NERVOUSNESS [None]
  - SCREAMING [None]
  - PSYCHOMOTOR HYPERACTIVITY [None]
  - DRUG INEFFECTIVE [None]
